FAERS Safety Report 24372743 (Version 1)
Quarter: 2024Q3

REPORT INFORMATION
  Report Type: Spontaneous
  Country: US (occurrence: None)
  Receive Date: 20240927
  Receipt Date: 20240927
  Transmission Date: 20241017
  Serious: Yes (Life-Threatening, Hospitalization)
  Sender: Public
  Company Number: None

PATIENT
  Age: 67 Year
  Sex: Female
  Weight: 77.11 kg

DRUGS (1)
  1. JARDIANCE [Suspect]
     Active Substance: EMPAGLIFLOZIN
     Indication: Type 2 diabetes mellitus
     Dates: start: 20240404, end: 20240720

REACTIONS (4)
  - Injection site abscess [None]
  - Impaired work ability [None]
  - Bacterial infection [None]
  - Therapy interrupted [None]

NARRATIVE: CASE EVENT DATE: 20240717
